FAERS Safety Report 18245937 (Version 1)
Quarter: 2020Q3

REPORT INFORMATION
  Report Type: Spontaneous
  Country: US (occurrence: US)
  Receive Date: 20200908
  Receipt Date: 20200908
  Transmission Date: 20201103
  Serious: Yes (Hospitalization)
  Sender: FDA-Public Use
  Company Number: None

PATIENT
  Sex: Female

DRUGS (19)
  1. DEXAMETHASON [Concomitant]
     Active Substance: DEXAMETHASONE
  2. GABAPENTIN. [Concomitant]
     Active Substance: GABAPENTIN
  3. LEVETIRACETA [Concomitant]
     Active Substance: LEVETIRACETAM
  4. METRONIFAZOL [Concomitant]
  5. OXYCODONE [Concomitant]
     Active Substance: OXYCODONE
  6. DOK [Concomitant]
     Active Substance: DOCUSATE SODIUM
  7. ENOXAPARIN [Concomitant]
     Active Substance: ENOXAPARIN
  8. HYDROCO/APAP [Concomitant]
     Active Substance: ACETAMINOPHEN\HYDROCODONE
  9. MOMETASONE [Concomitant]
     Active Substance: MOMETASONE
  10. ACYCLOVIR. [Concomitant]
     Active Substance: ACYCLOVIR
  11. A?HYDROCORT [Concomitant]
     Active Substance: HYDROCORTISONE SODIUM SUCCINATE
  12. PROCHLORPER [Concomitant]
  13. TALZENNA [Suspect]
     Active Substance: TALAZOPARIB TOSYLATE
     Indication: BONE CANCER
     Route: 048
     Dates: start: 20200804
  14. LORAZEPAM. [Concomitant]
     Active Substance: LORAZEPAM
  15. MULTI?VITAMIN [Concomitant]
     Active Substance: .ALPHA.-TOCOPHEROL ACETATE, DL-\ASCORBIC ACID\CYANOCOBALAMIN\FLUORIDE ION\FOLIC ACID\NIACIN\PYRIDOXINE\RIBOFLAVIN\THIAMINE\VITAMIN A\VITAMIN D
  16. OLANZAPINE. [Concomitant]
     Active Substance: OLANZAPINE
  17. ONDANSETRON [Concomitant]
     Active Substance: ONDANSETRON
  18. FAMOTIDINE. [Concomitant]
     Active Substance: FAMOTIDINE
  19. TERCONAZOLE. [Concomitant]
     Active Substance: TERCONAZOLE

REACTIONS (2)
  - Therapy interrupted [None]
  - Neoplasm malignant [None]
